FAERS Safety Report 14907366 (Version 2)
Quarter: 2019Q1

REPORT INFORMATION
  Report Type: Spontaneous
  Country: AU (occurrence: AU)
  Receive Date: 20180517
  Receipt Date: 20190313
  Transmission Date: 20190417
  Serious: Yes (Other)
  Sender: FDA-Public Use
  Company Number: AU-ACCORD-067070

PATIENT
  Age: 68 Year
  Sex: Male
  Weight: 70.6 kg

DRUGS (2)
  1. CITALOPRAM [Concomitant]
     Active Substance: CITALOPRAM HYDROBROMIDE
     Indication: BIPOLAR DISORDER
     Dosage: 10 MG DAILY ON DAY 1; INCREASED TO 20 MG ON DAY 5
  2. QUETIAPINE. [Suspect]
     Active Substance: QUETIAPINE
     Indication: BIPOLAR DISORDER
     Dosage: 50 MG EVERY NIGHT WAS ADDED ON DAY 4; 100 MG EVERY NIGHT ON DAY 5

REACTIONS (1)
  - Catatonia [Recovered/Resolved]
